FAERS Safety Report 8096734 (Version 3)
Quarter: 2013Q1

REPORT INFORMATION
  Report Type: Spontaneous
  Country: US (occurrence: US)
  Receive Date: 20110818
  Receipt Date: 20130307
  Transmission Date: 20140127
  Serious: Yes (Hospitalization, Other)
  Sender: FDA-Public Use
  Company Number: US-BAYER-2011-072825

PATIENT
  Age: 20 Year
  Sex: Female
  Weight: 52 kg

DRUGS (4)
  1. YASMIN [Suspect]
     Indication: CONTRACEPTION
     Dosage: UNK
     Dates: start: 2003, end: 2005
  2. YAZ [Suspect]
  3. HYDROCODONE W/APAP [Concomitant]
     Dosage: 10/650
  4. SPECTRACEF [Concomitant]
     Dosage: 200 MG, UNK

REACTIONS (9)
  - Deep vein thrombosis [Recovered/Resolved]
  - Pain in extremity [Recovered/Resolved]
  - Local swelling [Recovered/Resolved]
  - Injury [Recovered/Resolved]
  - Anxiety [None]
  - Anhedonia [None]
  - Cellulitis [None]
  - Pyrexia [None]
  - Depression [None]
